FAERS Safety Report 11005289 (Version 1)
Quarter: 2015Q2

REPORT INFORMATION
  Report Type: Spontaneous
  Country: US (occurrence: US)
  Receive Date: 20150409
  Receipt Date: 20150409
  Transmission Date: 20150821
  Serious: Yes (Other)
  Sender: FDA-Public Use
  Company Number: US-WATSON-2015-07422

PATIENT
  Sex: Male

DRUGS (1)
  1. TESTOSTERONE ENANTHATE (UNKNOWN) [Suspect]
     Active Substance: TESTOSTERONE ENANTHATE
     Indication: PRODUCT USED FOR UNKNOWN INDICATION
     Dosage: UNK
     Route: 065
     Dates: start: 2009

REACTIONS (2)
  - Transient ischaemic attack [Unknown]
  - Myocardial infarction [Unknown]

NARRATIVE: CASE EVENT DATE: 201202
